FAERS Safety Report 18389219 (Version 5)
Quarter: 2020Q4

REPORT INFORMATION
  Report Type: Spontaneous
  Country: AU (occurrence: AU)
  Receive Date: 20201015
  Receipt Date: 20201203
  Transmission Date: 20210114
  Serious: Yes (Hospitalization)
  Sender: FDA-Public Use
  Company Number: AU-MYLANLABS-2020M1086880

PATIENT
  Age: 19 Year
  Sex: Male

DRUGS (5)
  1. PANTOPRAZOLE [Concomitant]
     Active Substance: PANTOPRAZOLE
     Indication: GASTROOESOPHAGEAL REFLUX DISEASE
     Dosage: 40 MILLIGRAM, AM
     Dates: start: 20201008
  2. RAMIPRIL. [Concomitant]
     Active Substance: RAMIPRIL
     Indication: CARDIAC FAILURE
     Dosage: 2.5 MILLIGRAM, AM
     Dates: start: 20200919
  3. VALPROATE [Concomitant]
     Active Substance: VALPROIC ACID
     Indication: MOOD SWINGS
     Dosage: 500 MILLIGRAM, BID
     Dates: start: 20201002
  4. BISOPROLOL [Concomitant]
     Active Substance: BISOPROLOL
     Indication: CARDIAC FAILURE
     Dosage: 2.5 MILLIGRAM, AM
     Dates: start: 20200919
  5. CLOZARIL [Suspect]
     Active Substance: CLOZAPINE
     Indication: SCHIZOPHRENIA
     Dosage: UPTO 200 MILLIGRAM
     Route: 048
     Dates: start: 20200922, end: 20201010

REACTIONS (9)
  - Hospitalisation [Recovered/Resolved]
  - Viral infection [Unknown]
  - Malaise [Unknown]
  - White blood cell count decreased [Recovered/Resolved]
  - Myocarditis [Unknown]
  - C-reactive protein increased [Unknown]
  - Neutrophil count decreased [Recovered/Resolved]
  - Eosinophilia [Unknown]
  - Troponin increased [Unknown]

NARRATIVE: CASE EVENT DATE: 2020
